FAERS Safety Report 5569827-7 (Version None)
Quarter: 2007Q4

REPORT INFORMATION
  Report Type: 
  Country: None (occurrence: None)
  Receive Date: 20071220
  Receipt Date: 20070326
  Transmission Date: 20080405
  Serious: No
  Sender: FDA-Public Use
  Company Number: US-ABBOTT-07P-163-0363339-00

PATIENT
  Sex: Female
  Weight: 56.75 kg

DRUGS (2)
  1. OMNICEF [Suspect]
     Indication: SINUSITIS
     Route: 048
     Dates: start: 20070324
  2. NORETHISTERONE [Concomitant]
     Indication: CONTRACEPTION
     Route: 048

REACTIONS (1)
  - HAEMATOCHEZIA [None]
